FAERS Safety Report 7035363-4 (Version None)
Quarter: 2010Q4

REPORT INFORMATION
  Report Type: 
  Country: None (occurrence: None)
  Receive Date: 20101008
  Receipt Date: 20101004
  Transmission Date: 20110411
  Serious: Yes (Death)
  Sender: FDA-Public Use
  Company Number: US-CELGENEUS-163-21880-10100370

PATIENT
  Sex: Male

DRUGS (3)
  1. REVLIMID [Suspect]
     Indication: MULTIPLE MYELOMA
     Dosage: 25-10MG
     Route: 048
     Dates: start: 20060301
  2. REVLIMID [Suspect]
     Dosage: 15-10MG
     Route: 048
     Dates: start: 20070801
  3. REVLIMID [Suspect]
     Route: 048
     Dates: start: 20080601

REACTIONS (1)
  - DEATH [None]
